FAERS Safety Report 4581980-0 (Version None)
Quarter: 2005Q1

REPORT INFORMATION
  Report Type: 
  Country: None (occurrence: None)
  Receive Date: 20050119
  Receipt Date: 20040728
  Transmission Date: 20050727
  Serious: Yes (Other)
  Sender: FDA-Public Use
  Company Number: US-JNJFOC-20040707553

PATIENT
  Sex: Female

DRUGS (1)
  1. DOXIL [Suspect]
     Indication: BREAST CANCER
     Dosage: 40 MG, INTRAVENOUS
     Route: 042

REACTIONS (1)
  - BREAST CANCER [None]
